FAERS Safety Report 8560483-2 (Version None)
Quarter: 2012Q3

REPORT INFORMATION
  Report Type: 
  Country: None (occurrence: None)
  Receive Date: 20120802
  Receipt Date: 20120730
  Transmission Date: 20120928
  Serious: Yes (Hospitalization, Other)
  Sender: FDA-Public Use
  Company Number: ZA-BRACCO-000018

PATIENT
  Sex: Male

DRUGS (2)
  1. IOPAMIDOL [Suspect]
     Indication: PRODUCT USED FOR UNKNOWN INDICATION
     Dosage: IN THE SUBARCHNOID REGION
  2. IOPAMIDOL [Suspect]
     Indication: SPINAL MYELOGRAM
     Dosage: IN THE SUBARCHNOID REGION

REACTIONS (4)
  - AMNESIA [None]
  - LOSS OF CONSCIOUSNESS [None]
  - GRAND MAL CONVULSION [None]
  - OFF LABEL USE [None]
